FAERS Safety Report 5071332-1 (Version None)
Quarter: 2006Q3

REPORT INFORMATION
  Report Type: 
  Country: None (occurrence: None)
  Receive Date: 20060804
  Receipt Date: 20060208
  Transmission Date: 20061208
  Serious: No
  Sender: FDA-Public Use
  Company Number: US-AMGEN-US168102

PATIENT
  Sex: Female

DRUGS (17)
  1. ARANESP [Suspect]
     Indication: DIALYSIS
     Route: 042
     Dates: start: 20040927
  2. COMPAZINE [Concomitant]
  3. MULTIVITE [Concomitant]
  4. DOCUSATE [Concomitant]
  5. LEVOTHYROXINE SODIUM [Concomitant]
  6. LISINOPRIL [Concomitant]
  7. MEVACOR [Concomitant]
  8. MIDODRINE HYDROCHLORIDE [Concomitant]
  9. MIRALAX [Concomitant]
  10. INSULIN ILETIN I REGULAR [Concomitant]
  11. RENAGEL [Concomitant]
  12. ROBITUSSIN [Concomitant]
  13. TRAZODONE HCL [Concomitant]
  14. ACETAMINOPHEN [Concomitant]
  15. VICODIN [Concomitant]
  16. ZEMPLAR [Concomitant]
  17. ZOLOFT [Concomitant]

REACTIONS (1)
  - THERAPEUTIC RESPONSE DECREASED [None]
